FAERS Safety Report 5915117-X (Version None)
Quarter: 2008Q4

REPORT INFORMATION
  Report Type: 
  Country: None (occurrence: None)
  Receive Date: 20081010
  Receipt Date: 20081008
  Transmission Date: 20090506
  Serious: Yes (Hospitalization)
  Sender: FDA-Public Use
  Company Number: B0540899A

PATIENT
  Age: 87 Year
  Sex: Male

DRUGS (3)
  1. MELPHALAN [Suspect]
     Indication: MULTIPLE MYELOMA
     Dosage: 12MG PER DAY
     Route: 065
     Dates: start: 20080814
  2. BLINDED TRIAL MEDICATION [Suspect]
     Indication: MULTIPLE MYELOMA
     Dosage: 2CAP PER DAY
     Route: 048
     Dates: start: 20080814, end: 20080905
  3. PREDNISONE [Suspect]
     Indication: MULTIPLE MYELOMA
     Dosage: 140MG PER DAY
     Dates: start: 20080814

REACTIONS (3)
  - COUGH [None]
  - GENERAL PHYSICAL HEALTH DETERIORATION [None]
  - PNEUMONIA [None]
